FAERS Safety Report 21199141 (Version 1)
Quarter: 2022Q3

REPORT INFORMATION
  Report Type: Spontaneous
  Country: PL (occurrence: PL)
  Receive Date: 20220811
  Receipt Date: 20220811
  Transmission Date: 20221027
  Serious: Yes (Other)
  Sender: FDA-Public Use
  Company Number: PL-002147023-NVSC2022PL176604

PATIENT
  Sex: Female

DRUGS (2)
  1. TEMOZOLOMIDE [Suspect]
     Active Substance: TEMOZOLOMIDE
     Indication: Brain neoplasm
     Dosage: UNK
     Dates: start: 202104
  2. CISPLATIN [Suspect]
     Active Substance: CISPLATIN
     Indication: Brain stem glioma
     Dosage: UNK
     Dates: start: 202104

REACTIONS (4)
  - Malignant neoplasm progression [Unknown]
  - Facial paralysis [Unknown]
  - VIth nerve paralysis [Unknown]
  - Brain stem glioma [Unknown]
